FAERS Safety Report 25039567 (Version 1)
Quarter: 2025Q1

REPORT INFORMATION
  Report Type: Spontaneous
  Country: US (occurrence: US)
  Receive Date: 20250305
  Receipt Date: 20250305
  Transmission Date: 20250408
  Serious: No
  Sender: GRIFOLS
  Company Number: US-IGSA-BIG0033295

PATIENT
  Age: 61 Year
  Sex: Female
  Weight: 70.31 kg

DRUGS (11)
  1. GAMUNEX-C [Suspect]
     Active Substance: HUMAN IMMUNOGLOBULIN G
     Indication: Uveitis
     Dosage: 140 GRAM, Q.4WK.
     Route: 042
     Dates: start: 20241216, end: 20250225
  2. GAMUNEX-C [Suspect]
     Active Substance: HUMAN IMMUNOGLOBULIN G
     Indication: Off label use
  3. ACETAMINOPHEN [Concomitant]
     Active Substance: ACETAMINOPHEN
     Indication: Premedication
     Route: 048
  4. DIPHENHYDRAMINE [Concomitant]
     Active Substance: DIPHENHYDRAMINE
     Indication: Premedication
     Route: 048
  5. AZATHIOPRINE [Concomitant]
     Active Substance: AZATHIOPRINE
  6. COSOPT [Concomitant]
     Active Substance: DORZOLAMIDE HYDROCHLORIDE\TIMOLOL MALEATE
  7. LATANOPROST [Concomitant]
     Active Substance: LATANOPROST
  8. ALPRAZOLAM [Concomitant]
     Active Substance: ALPRAZOLAM
  9. HYDROCHLOROTHIAZIDE [Concomitant]
     Active Substance: HYDROCHLOROTHIAZIDE
  10. BRIMONIDINE [Concomitant]
     Active Substance: BRIMONIDINE TARTRATE
  11. VALACYCLOVIR [Concomitant]
     Active Substance: VALACYCLOVIR HYDROCHLORIDE

REACTIONS (6)
  - Dyspepsia [Recovered/Resolved]
  - Chest pain [Recovered/Resolved]
  - Back pain [Recovered/Resolved]
  - Rash pruritic [Recovered/Resolved]
  - Peripheral swelling [Recovered/Resolved]
  - Tremor [Recovered/Resolved]

NARRATIVE: CASE EVENT DATE: 20250223
